FAERS Safety Report 5300202-6 (Version None)
Quarter: 2007Q2

REPORT INFORMATION
  Report Type: 
  Country: None (occurrence: None)
  Receive Date: 20070411
  Receipt Date: 20070329
  Transmission Date: 20071010
  Serious: Yes (Other)
  Sender: FDA-Public Use
  Company Number: 02100-JPN-07-0170

PATIENT
  Age: 75 Year
  Sex: Male

DRUGS (6)
  1. CILOSTAZOL [Suspect]
     Indication: CEREBRAL INFARCTION
     Dosage: 200 MG ORAL
     Route: 048
  2. DIGOXIN [Concomitant]
  3. COLCHICINE [Concomitant]
  4. POLAPREZINC [Concomitant]
  5. QUETIAPINE FUMARATE [Concomitant]
  6. ZOLPIDEM TARTRATE [Concomitant]

REACTIONS (1)
  - PANCYTOPENIA [None]
